FAERS Safety Report 23415986 (Version 1)
Quarter: 2024Q1

REPORT INFORMATION
  Report Type: Spontaneous
  Country: FR (occurrence: FR)
  Receive Date: 20240118
  Receipt Date: 20240118
  Transmission Date: 20240409
  Serious: Yes (Hospitalization, Other)
  Sender: FDA-Public Use
  Company Number: None

PATIENT
  Age: 38 Year
  Sex: Male
  Weight: 76 kg

DRUGS (2)
  1. ASPERCREME LIDOCAINE WITH EUCALYPTUS ESSENTIAL OIL [Suspect]
     Active Substance: LIDOCAINE HYDROCHLORIDE
     Indication: Anaesthesia
     Dosage: 2ML
     Route: 058
  2. PREDNISONE [Suspect]
     Active Substance: PREDNISONE
     Indication: Sciatica
     Dosage: UNK UNK, 1X
     Route: 008
     Dates: start: 20230908, end: 20230908

REACTIONS (12)
  - Spinal cord ischaemia [Not Recovered/Not Resolved]
  - Pain in extremity [Recovered/Resolved]
  - Bladder sphincter atony [Not Recovered/Not Resolved]
  - Anal sphincter atony [Not Recovered/Not Resolved]
  - Genital hypoaesthesia [Not Recovered/Not Resolved]
  - Mobility decreased [Not Recovered/Not Resolved]
  - Paraesthesia [Not Recovered/Not Resolved]
  - Motor dysfunction [Not Recovered/Not Resolved]
  - Panic attack [Recovered/Resolved]
  - Cauda equina syndrome [Unknown]
  - Urinary incontinence [Unknown]
  - Overdose [Unknown]

NARRATIVE: CASE EVENT DATE: 20230908
